FAERS Safety Report 13497162 (Version 1)
Quarter: 2017Q2

REPORT INFORMATION
  Report Type: Report from Study
  Country: FR (occurrence: FR)
  Receive Date: 20170428
  Receipt Date: 20170428
  Transmission Date: 20170830
  Serious: Yes (Hospitalization)
  Sender: FDA-Public Use
  Company Number: PHHY2016FR069992

PATIENT
  Age: 54 Year
  Sex: Female
  Weight: 64 kg

DRUGS (5)
  1. LEVOTHYROX [Concomitant]
     Active Substance: LEVOTHYROXINE
     Indication: PRODUCT USED FOR UNKNOWN INDICATION
     Dosage: 175 UG, QD
     Route: 065
  2. PERFALGAN [Concomitant]
     Active Substance: ACETAMINOPHEN
     Indication: INFLAMMATION
     Dosage: 1 G, UNK
     Route: 042
     Dates: start: 20150917, end: 20150918
  3. FYCOMPA [Concomitant]
     Active Substance: PERAMPANEL
     Indication: PRODUCT USED FOR UNKNOWN INDICATION
     Dosage: 6 MG, QD
     Route: 065
  4. VOTUBIA [Suspect]
     Active Substance: EVEROLIMUS
     Dosage: 10 MG, QD
     Route: 048
     Dates: start: 20131113
  5. TEGRETOL [Concomitant]
     Active Substance: CARBAMAZEPINE
     Indication: PRODUCT USED FOR UNKNOWN INDICATION
     Dosage: 400 MG, BID
     Route: 065

REACTIONS (6)
  - Hyperthermia [Unknown]
  - Inflammation [Recovered/Resolved]
  - Abdominal pain [Unknown]
  - Renal aneurysm [Unknown]
  - C-reactive protein decreased [Unknown]
  - Renal cyst [Unknown]

NARRATIVE: CASE EVENT DATE: 20150917
